FAERS Safety Report 5771784-5 (Version None)
Quarter: 2008Q2

REPORT INFORMATION
  Report Type: 
  Country: None (occurrence: None)
  Receive Date: 20080613
  Receipt Date: 20080603
  Transmission Date: 20081010
  Serious: Yes (Other)
  Sender: FDA-Public Use
  Company Number: US-WYE-H04363608

PATIENT
  Age: 41 Year
  Sex: Female

DRUGS (5)
  1. PRISTIQ [Suspect]
     Indication: DEPRESSION
     Route: 048
     Dates: start: 20080528, end: 20080530
  2. CLONAZEPAM [Concomitant]
     Indication: ANXIETY
     Dosage: 1 MG AS NEEDED FOR ANXIETY
  3. AMFEBUTAMONE [Concomitant]
     Dosage: UNKNOWN
  4. LITHIUM CARBONATE [Concomitant]
     Dosage: UNKNOWN
  5. TOPAMAX [Concomitant]
     Indication: MIGRAINE PROPHYLAXIS
     Dosage: UNKNOWN

REACTIONS (5)
  - AGITATION [None]
  - CONFUSIONAL STATE [None]
  - DISTURBANCE IN ATTENTION [None]
  - HOSTILITY [None]
  - VIOLENCE-RELATED SYMPTOM [None]
